FAERS Safety Report 8283264-6 (Version None)
Quarter: 2012Q2

REPORT INFORMATION
  Report Type: 
  Country: None (occurrence: None)
  Receive Date: 20120413
  Receipt Date: 20120405
  Transmission Date: 20120825
  Serious: Yes (Hospitalization)
  Sender: FDA-Public Use
  Company Number: JP-EISAI INC-E7389-02279-SPO-JP

PATIENT
  Age: 60 Year
  Sex: Female
  Weight: 53 kg

DRUGS (5)
  1. LENDORMIN [Concomitant]
     Route: 048
  2. MEDROXYPROGESTERONE ACETATE [Concomitant]
     Indication: BREAST CANCER
     Route: 048
     Dates: start: 20120124
  3. HALAVEN [Suspect]
     Indication: BREAST CANCER
     Route: 041
     Dates: start: 20120123
  4. PREGABALIN [Concomitant]
     Route: 048
     Dates: start: 20120304
  5. HALAVEN [Suspect]
     Route: 041
     Dates: start: 20120116, end: 20120116

REACTIONS (2)
  - SEPSIS [None]
  - RENAL FAILURE ACUTE [None]
